FAERS Safety Report 5455995-4 (Version None)
Quarter: 2007Q3

REPORT INFORMATION
  Report Type: 
  Country: None (occurrence: None)
  Receive Date: 20070918
  Receipt Date: 20070430
  Transmission Date: 20080115
  Serious: Yes (Hospitalization, Other)
  Sender: FDA-Public Use
  Company Number: US-ASTRAZENECA-2006UW23714

PATIENT
  Age: 12371 Day
  Sex: Female
  Weight: 56.3 kg

DRUGS (2)
  1. SEROQUEL [Suspect]
     Indication: INSOMNIA
     Route: 048
  2. ZYPREXA [Concomitant]

REACTIONS (1)
  - PANCREATITIS [None]
